FAERS Safety Report 23428132 (Version 2)
Quarter: 2024Q1

REPORT INFORMATION
  Report Type: Report from Study
  Country: US (occurrence: US)
  Receive Date: 20240122
  Receipt Date: 20240201
  Transmission Date: 20240410
  Serious: Yes (Other)
  Sender: FDA-Public Use
  Company Number: US-AstraZeneca-CH-00546088A

PATIENT
  Sex: Female

DRUGS (1)
  1. ULTOMIRIS [Suspect]
     Active Substance: RAVULIZUMAB-CWVZ
     Indication: Myasthenia gravis
     Dosage: UNK
     Route: 065

REACTIONS (8)
  - Hemiparesis [Unknown]
  - Blindness [Unknown]
  - Aphasia [Unknown]
  - Fatigue [Unknown]
  - Eyelid ptosis [Unknown]
  - Product dose omission issue [Unknown]
  - Asthenia [Unknown]
  - General physical health deterioration [Unknown]
